FAERS Safety Report 5701385-6 (Version None)
Quarter: 2008Q2

REPORT INFORMATION
  Report Type: 
  Country: None (occurrence: None)
  Receive Date: 20080410
  Receipt Date: 20080402
  Transmission Date: 20081010
  Serious: No
  Sender: FDA-Public Use
  Company Number: US-BAXTER-2008BH003068

PATIENT
  Age: 40 Year
  Sex: Female

DRUGS (2)
  1. HEPARIN SODIUM [Suspect]
     Indication: VARICOSE VEIN
     Dates: start: 20060101, end: 20060101
  2. HEPARIN SODIUM [Suspect]
     Indication: PAIN IN EXTREMITY
     Dates: start: 20060101, end: 20060101

REACTIONS (5)
  - CHEST DISCOMFORT [None]
  - CHEST PAIN [None]
  - CREPITATIONS [None]
  - DRUG EXPOSURE DURING PREGNANCY [None]
  - DYSPNOEA [None]
